FAERS Safety Report 6203195-2 (Version None)
Quarter: 2009Q2

REPORT INFORMATION
  Report Type: 
  Country: None (occurrence: None)
  Receive Date: 20090527
  Receipt Date: 20090518
  Transmission Date: 20091009
  Serious: Yes (Other)
  Sender: FDA-Public Use
  Company Number: US-BAYER-200921157NA

PATIENT
  Age: 31 Year
  Sex: Female
  Weight: 86 kg

DRUGS (1)
  1. MIRENA [Suspect]
     Indication: CONTRACEPTION
     Dosage: CONTINUOUS
     Route: 015
     Dates: start: 20081007, end: 20090312

REACTIONS (6)
  - ABORTION SPONTANEOUS [None]
  - BREAST TENDERNESS [None]
  - IUCD COMPLICATION [None]
  - MENORRHAGIA [None]
  - PREGNANCY [None]
  - VULVOVAGINAL MYCOTIC INFECTION [None]
